FAERS Safety Report 9457409 (Version 7)
Quarter: 2014Q2

REPORT INFORMATION
  Report Type: Report from Study
  Country: CA (occurrence: CA)
  Receive Date: 20130814
  Receipt Date: 20140519
  Transmission Date: 20141212
  Serious: Yes (Other)
  Sender: FDA-Public Use
  Company Number: CA-ROCHE-730464

PATIENT
  Age: 59 Year
  Sex: Male
  Weight: 93 kg

DRUGS (27)
  1. ACTEMRA [Suspect]
     Indication: RHEUMATOID ARTHRITIS
     Route: 042
     Dates: start: 20100816
  2. ACTEMRA [Suspect]
     Route: 042
     Dates: start: 20100913
  3. ACTEMRA [Suspect]
     Route: 042
     Dates: start: 20101019
  4. ACTEMRA [Suspect]
     Route: 042
     Dates: start: 20101116
  5. ACTEMRA [Suspect]
     Route: 042
     Dates: start: 20101229
  6. ACTEMRA [Suspect]
     Route: 042
     Dates: start: 20110126
  7. ACTEMRA [Suspect]
     Route: 042
     Dates: start: 20110223
  8. ACTEMRA [Suspect]
     Route: 042
     Dates: start: 20110420
  9. ACTEMRA [Suspect]
     Route: 042
     Dates: start: 20110518
  10. ACTEMRA [Suspect]
     Route: 042
     Dates: start: 20110615
  11. ACTEMRA [Suspect]
     Route: 042
     Dates: start: 20110713
  12. ACTEMRA [Suspect]
     Route: 042
     Dates: start: 20110907
  13. ACTEMRA [Suspect]
     Route: 042
     Dates: start: 20110713
  14. ACTEMRA [Suspect]
     Route: 042
     Dates: start: 20110713
  15. ACTEMRA [Suspect]
     Route: 042
     Dates: start: 20111202
  16. ACTEMRA [Suspect]
     Dosage: LAST INFUSION WAS GIVEN ON 20/FEB/2014
     Route: 042
     Dates: start: 20121227
  17. ACTEMRA [Suspect]
     Route: 042
     Dates: start: 20131128
  18. LIPITOR [Concomitant]
     Route: 065
  19. MICARDIS PLUS [Concomitant]
  20. SULFASALAZINE [Concomitant]
     Route: 065
  21. METHOTREXATE [Concomitant]
     Route: 065
  22. PREDNISONE [Concomitant]
     Route: 065
  23. APO-LANSOPRAZOLE [Concomitant]
     Route: 065
  24. JAMP-CALCIUM [Concomitant]
     Route: 065
  25. SULFASALAZINE [Concomitant]
  26. BROMAZEPAM [Concomitant]
     Route: 065
  27. BROMAZEPAM [Concomitant]
     Route: 065

REACTIONS (14)
  - Bursitis [Unknown]
  - Erythema [Recovering/Resolving]
  - Dizziness [Unknown]
  - Blood pressure decreased [Unknown]
  - Fatigue [Not Recovered/Not Resolved]
  - Arthralgia [Not Recovered/Not Resolved]
  - Pain in extremity [Not Recovered/Not Resolved]
  - Arthralgia [Not Recovered/Not Resolved]
  - Arthralgia [Not Recovered/Not Resolved]
  - Insomnia [Recovered/Resolved]
  - Rash erythematous [Unknown]
  - Fungal infection [Unknown]
  - Localised infection [Recovered/Resolved]
  - Drug ineffective [Unknown]
